FAERS Safety Report 5682342-5 (Version None)
Quarter: 2008Q1

REPORT INFORMATION
  Report Type: 
  Country: None (occurrence: None)
  Receive Date: 20080327
  Receipt Date: 20080317
  Transmission Date: 20080703
  Serious: Yes (Hospitalization)
  Sender: FDA-Public Use
  Company Number: US-JNJFOC-20080304946

PATIENT
  Sex: Female
  Weight: 47.63 kg

DRUGS (3)
  1. DURAGESIC-100 [Suspect]
     Indication: ABDOMINAL PAIN UPPER
     Route: 062
  2. PERCOCET [Concomitant]
     Indication: BREAKTHROUGH PAIN
     Dosage: 5-10MG, 1 OR 2 TABLETS AS NEEDED
     Route: 048
  3. BENTYL [Concomitant]
     Indication: ABDOMINAL PAIN UPPER
     Route: 048

REACTIONS (4)
  - ABDOMINAL OPERATION [None]
  - INCORRECT DRUG ADMINISTRATION DURATION [None]
  - STOMACH DISCOMFORT [None]
  - WITHDRAWAL SYNDROME [None]
